FAERS Safety Report 5487751-5 (Version None)
Quarter: 2007Q4

REPORT INFORMATION
  Report Type: 
  Country: None (occurrence: None)
  Receive Date: 20071017
  Receipt Date: 20071010
  Transmission Date: 20080405
  Serious: Yes (Other)
  Sender: FDA-Public Use
  Company Number: BE-JNJFOC-20071002557

PATIENT
  Age: 83 Year
  Sex: Male

DRUGS (4)
  1. REMINYL [Suspect]
     Indication: DEMENTIA
     Route: 048
  2. CORDARONE [Concomitant]
     Indication: ARRHYTHMIA
     Route: 048
  3. ASPIRIN [Concomitant]
     Indication: PROPHYLAXIS
     Route: 048
  4. EFFORTIL [Concomitant]
     Indication: HYPOTENSION
     Route: 048

REACTIONS (4)
  - LOSS OF CONSCIOUSNESS [None]
  - ORTHOSTATIC HYPOTENSION [None]
  - VENTRICULAR ARRHYTHMIA [None]
  - WRONG TECHNIQUE IN DRUG USAGE PROCESS [None]
